FAERS Safety Report 9507693 (Version 1)
Quarter: 2013Q1

REPORT INFORMATION
  Report Type: Spontaneous
  Country: US (occurrence: None)
  Receive Date: 20130305
  Receipt Date: 20130305
  Transmission Date: 20140127
  Serious: No
  Sender: FDA-Public Use
  Company Number: 163-21880-12052883

PATIENT
  Age: 75 Year
  Sex: Female

DRUGS (6)
  1. REVLIMID (LENALIDOMIDE) (15 MILLIGRAM, CAPSULES) [Suspect]
     Dosage: 15MG, 21, PO
     Route: 048
     Dates: start: 20120224
  2. DEXAMETHASONE (DEXAMETHASONE) [Concomitant]
  3. ASPIR-LOW (ACETYLS-ALICYLIC) [Concomitant]
  4. TEMAZEPAM (TEMAZEPAM) [Concomitant]
  5. ULTRAM (TRAMADOL HYDROCHLORIDE) [Concomitant]
  6. SOMA (CARISOPRODOL) [Concomitant]

REACTIONS (1)
  - Cerebrovascular accident [None]
